FAERS Safety Report 9279583 (Version 80)
Quarter: 2021Q3

REPORT INFORMATION
  Report Type: Other
  Country: CA (occurrence: CA)
  Receive Date: 20130509
  Receipt Date: 20210823
  Transmission Date: 20211014
  Serious: Yes (Other)
  Sender: FDA-Public Use
  Company Number: CA-ROCHE-1132729

PATIENT
  Age: 56 Year
  Sex: Female
  Weight: 87 kg

DRUGS (22)
  1. ACTEMRA [Suspect]
     Active Substance: TOCILIZUMAB
     Route: 042
     Dates: start: 20110517
  2. METHOTREXATE. [Concomitant]
     Active Substance: METHOTREXATE
     Indication: PRODUCT USED FOR UNKNOWN INDICATION
  3. ACTEMRA [Suspect]
     Active Substance: TOCILIZUMAB
     Route: 042
     Dates: start: 20170905
  4. ASPIRINE [Concomitant]
     Active Substance: ASPIRIN
     Indication: PRODUCT USED FOR UNKNOWN INDICATION
     Dates: start: 2020
  5. ACTEMRA [Suspect]
     Active Substance: TOCILIZUMAB
     Route: 042
     Dates: start: 20110112
  6. FOLIC ACID. [Concomitant]
     Active Substance: FOLIC ACID
     Indication: PRODUCT USED FOR UNKNOWN INDICATION
  7. ACTEMRA [Suspect]
     Active Substance: TOCILIZUMAB
     Route: 042
     Dates: start: 20130904
  8. ACTEMRA [Suspect]
     Active Substance: TOCILIZUMAB
     Dosage: B2098B02/ 30?JUN?2022,B2086B13/ 30?NOV?2021
     Route: 042
     Dates: start: 20160906
  9. ACTEMRA [Suspect]
     Active Substance: TOCILIZUMAB
     Route: 042
     Dates: start: 20110613, end: 20160802
  10. PLAVIX [Concomitant]
     Active Substance: CLOPIDOGREL BISULFATE
     Indication: PRODUCT USED FOR UNKNOWN INDICATION
  11. ACTEMRA [Suspect]
     Active Substance: TOCILIZUMAB
     Route: 041
     Dates: start: 20110323, end: 20110517
  12. ARTHROTEC [Concomitant]
     Active Substance: DICLOFENAC SODIUM\MISOPROSTOL
     Indication: PRODUCT USED FOR UNKNOWN INDICATION
  13. CLOPIDOGREL BISULFATE. [Concomitant]
     Active Substance: CLOPIDOGREL BISULFATE
     Indication: PRODUCT USED FOR UNKNOWN INDICATION
     Dates: start: 2020
  14. ACTEMRA [Suspect]
     Active Substance: TOCILIZUMAB
     Dosage: ADDITIONAL BATCH/LOT FROM 02?AUG?2016: B2061B20 (31?DEC?2017)
     Route: 042
     Dates: start: 20110613, end: 20160802
  15. ACTEMRA [Suspect]
     Active Substance: TOCILIZUMAB
     Route: 042
     Dates: start: 20110324
  16. ACTEMRA [Suspect]
     Active Substance: TOCILIZUMAB
     Route: 042
     Dates: start: 20110224
  17. L?TYROSINE [Concomitant]
     Active Substance: TYROSINE
     Indication: PRODUCT USED FOR UNKNOWN INDICATION
  18. VITAMIN B6 [Concomitant]
     Active Substance: PYRIDOXINE HYDROCHLORIDE
     Indication: PRODUCT USED FOR UNKNOWN INDICATION
  19. ACTEMRA [Suspect]
     Active Substance: TOCILIZUMAB
     Indication: RHEUMATOID ARTHRITIS
     Dosage: BATCH/LOT NOT PROVIDED ON PIR.
     Route: 042
     Dates: start: 20110224, end: 20110224
  20. ACTEMRA [Suspect]
     Active Substance: TOCILIZUMAB
     Route: 042
     Dates: start: 20110222
  21. ACTEMRA [Suspect]
     Active Substance: TOCILIZUMAB
     Route: 042
     Dates: start: 20110603
  22. SAM?E [Concomitant]
     Active Substance: ADEMETIONINE
     Indication: PRODUCT USED FOR UNKNOWN INDICATION

REACTIONS (63)
  - Umbilical hernia [Unknown]
  - Nasopharyngitis [Not Recovered/Not Resolved]
  - Lower respiratory tract congestion [Not Recovered/Not Resolved]
  - Bronchitis [Recovering/Resolving]
  - Migraine [Unknown]
  - Musculoskeletal stiffness [Not Recovered/Not Resolved]
  - Dizziness [Unknown]
  - Blood pressure systolic increased [Unknown]
  - Dysphonia [Not Recovered/Not Resolved]
  - Restlessness [Not Recovered/Not Resolved]
  - Blood pressure systolic abnormal [Unknown]
  - Blood pressure diastolic abnormal [Unknown]
  - Gait disturbance [Not Recovered/Not Resolved]
  - Asthenopia [Unknown]
  - Dyspnoea [Not Recovered/Not Resolved]
  - Limb injury [Not Recovered/Not Resolved]
  - Vertigo [Unknown]
  - Eczema [Not Recovered/Not Resolved]
  - Oropharyngeal pain [Not Recovered/Not Resolved]
  - Nasopharyngitis [Recovered/Resolved]
  - Arthralgia [Not Recovered/Not Resolved]
  - Mobility decreased [Not Recovered/Not Resolved]
  - Paraesthesia [Unknown]
  - Pain [Not Recovered/Not Resolved]
  - Chest pain [Not Recovered/Not Resolved]
  - Tongue injury [Recovering/Resolving]
  - Infusion related reaction [Recovering/Resolving]
  - Fall [Unknown]
  - Vision blurred [Unknown]
  - Headache [Not Recovered/Not Resolved]
  - Tinnitus [Not Recovered/Not Resolved]
  - Hyperhidrosis [Not Recovered/Not Resolved]
  - Disability assessment scale score increased [Unknown]
  - Thyroid disorder [Unknown]
  - Autoimmune thyroiditis [Not Recovered/Not Resolved]
  - Blood pressure increased [Unknown]
  - Nausea [Not Recovered/Not Resolved]
  - Oxygen saturation decreased [Unknown]
  - Influenza [Recovering/Resolving]
  - Heart rate decreased [Unknown]
  - Lip injury [Recovering/Resolving]
  - Rheumatoid arthritis [Not Recovered/Not Resolved]
  - Weight increased [Not Recovered/Not Resolved]
  - Lower respiratory tract infection [Recovering/Resolving]
  - Fatigue [Unknown]
  - Gastroenteritis viral [Unknown]
  - Nasal congestion [Recovering/Resolving]
  - Insomnia [Not Recovered/Not Resolved]
  - Dysphagia [Not Recovered/Not Resolved]
  - Cough [Not Recovered/Not Resolved]
  - Breath sounds abnormal [Unknown]
  - Asthma [Not Recovered/Not Resolved]
  - Accident [Recovered/Resolved]
  - Osteoarthritis [Not Recovered/Not Resolved]
  - Rash [Not Recovered/Not Resolved]
  - Nausea [Unknown]
  - Feeling cold [Not Recovered/Not Resolved]
  - Haematochezia [Not Recovered/Not Resolved]
  - Sinusitis [Not Recovered/Not Resolved]
  - Dental caries [Recovered/Resolved]
  - Stomatitis [Recovered/Resolved]
  - Feeling hot [Not Recovered/Not Resolved]
  - Sinus congestion [Not Recovered/Not Resolved]

NARRATIVE: CASE EVENT DATE: 2012
